FAERS Safety Report 9889331 (Version 1)
Quarter: 2014Q1

REPORT INFORMATION
  Report Type: Report from Study
  Country: US (occurrence: US)
  Receive Date: 20140211
  Receipt Date: 20140211
  Transmission Date: 20141002
  Serious: Yes (Other)
  Sender: FDA-Public Use
  Company Number: US-ASTELLAS-2014US001431

PATIENT
  Sex: 0

DRUGS (2)
  1. ERLOTINIB TABLET [Suspect]
     Indication: MALIGNANT GLIOMA
     Dosage: 150 MG, UID/QD
     Route: 048
  2. TEMSIROLIMUS [Suspect]
     Indication: MALIGNANT GLIOMA
     Dosage: UNK
     Route: 042

REACTIONS (2)
  - Off label use [Unknown]
  - Thrombocytopenia [Unknown]
